FAERS Safety Report 25620362 (Version 2)
Quarter: 2025Q3

REPORT INFORMATION
  Report Type: Spontaneous
  Country: US (occurrence: US)
  Receive Date: 20250730
  Receipt Date: 20250806
  Transmission Date: 20251020
  Serious: No
  Sender: ROCHE
  Company Number: US-ROCHE-10000343303

PATIENT
  Sex: Female

DRUGS (1)
  1. ACTEMRA [Suspect]
     Active Substance: TOCILIZUMAB
     Indication: Product used for unknown indication
     Route: 058

REACTIONS (4)
  - Device issue [Unknown]
  - Product complaint [Unknown]
  - Device defective [Unknown]
  - Migraine [Unknown]

NARRATIVE: CASE EVENT DATE: 20250718
